FAERS Safety Report 10216866 (Version 2)
Quarter: 2014Q2

REPORT INFORMATION
  Report Type: Other
  Country: CA (occurrence: CA)
  Receive Date: 20140604
  Receipt Date: 20140604
  Transmission Date: 20141212
  Serious: Yes (Hospitalization, Other)
  Sender: FDA-Public Use
  Company Number: CA-GSKPPD-2014GSK037875

PATIENT
  Age: 72 Year
  Sex: Male

DRUGS (3)
  1. AVANDIA [Suspect]
     Indication: DIABETES MELLITUS
     Route: 048
  2. COVERSYL [Concomitant]
  3. BISOPROLOL [Concomitant]

REACTIONS (3)
  - Coronary artery stenosis [Recovered/Resolved]
  - Myocardial infarction [Recovered/Resolved]
  - Stent placement [Recovered/Resolved]
